FAERS Safety Report 4964407-6 (Version None)
Quarter: 2006Q1

REPORT INFORMATION
  Report Type: 
  Country: None (occurrence: None)
  Receive Date: 20060331
  Receipt Date: 20060313
  Transmission Date: 20060701
  Serious: Yes (Hospitalization)
  Sender: FDA-Public Use
  Company Number: USA0511112380

PATIENT
  Age: 40 Year
  Sex: Male

DRUGS (2)
  1. CYMBALTA [Suspect]
     Dosage: 60 MG,
  2. SSRI [Concomitant]

REACTIONS (2)
  - CONFUSIONAL STATE [None]
  - NEUROLOGICAL SYMPTOM [None]
